FAERS Safety Report 8913292 (Version 2)
Quarter: 2012Q4

REPORT INFORMATION
  Report Type: 
  Country: JP (occurrence: JP)
  Receive Date: 20121116
  Receipt Date: 20121211
  Transmission Date: 20130627
  Serious: Yes (Other)
  Sender: FDA-Public Use
  Company Number: JP-BAXTER-2012BAX023495

PATIENT
  Age: 8 None
  Sex: Female
  Weight: 47 kg

DRUGS (5)
  1. SUPRANE [Suspect]
     Indication: DUODENAL OPERATION
     Route: 055
     Dates: start: 20121023, end: 20121023
  2. REMIFENTANIL HYDROCHLORIDE [Suspect]
     Indication: DUODENAL OPERATION
     Dosage: 0.4 MCG/KG
     Route: 055
     Dates: start: 20121023, end: 20121023
  3. PROPOFOL [Suspect]
     Indication: DUODENAL OPERATION
     Route: 042
     Dates: start: 20121023, end: 20121023
  4. ESLAX [Suspect]
     Indication: DUODENAL OPERATION
     Route: 042
     Dates: start: 20121023, end: 20121023
  5. SEVOFLURANE [Concomitant]
     Indication: DRUG USE FOR UNKNOWN INDICATION
     Route: 065

REACTIONS (1)
  - Tracheal obstruction [Recovered/Resolved]
